FAERS Safety Report 5410355-7 (Version None)
Quarter: 2007Q3

REPORT INFORMATION
  Report Type: 
  Country: None (occurrence: None)
  Receive Date: 20070808
  Receipt Date: 20070724
  Transmission Date: 20080115
  Serious: Yes (Death)
  Sender: FDA-Public Use
  Company Number: TNZIE200700081

PATIENT
  Age: 79 Year
  Sex: Female

DRUGS (2)
  1. INNOHEP [Suspect]
     Indication: PULMONARY EMBOLISM
     Dosage: 175 IU/KG, SUBCUTANEOUS
     Route: 058
     Dates: start: 20070701, end: 20070701
  2. ENOXAPARIN SODIUM [Concomitant]

REACTIONS (6)
  - CONVULSION [None]
  - GENERAL PHYSICAL HEALTH DETERIORATION [None]
  - MULTIPLE FRACTURES [None]
  - PULMONARY EMBOLISM [None]
  - ROAD TRAFFIC ACCIDENT [None]
  - SUBDURAL HAEMATOMA [None]
